FAERS Safety Report 17025723 (Version 1)
Quarter: 2019Q4

REPORT INFORMATION
  Report Type: Report from Study
  Country: None (occurrence: US)
  Receive Date: 20191113
  Receipt Date: 20191113
  Transmission Date: 20200122
  Serious: Yes (Other)
  Sender: FDA-Public Use
  Company Number: US-ABBVIE-19K-163-2997607-00

PATIENT
  Age: 45 Year
  Sex: Female

DRUGS (1)
  1. HUMIRA [Suspect]
     Active Substance: ADALIMUMAB
     Indication: RHEUMATOID ARTHRITIS
     Route: 058

REACTIONS (6)
  - Scab [Unknown]
  - Joint dislocation [Unknown]
  - Wound complication [Unknown]
  - Hypermobility syndrome [Unknown]
  - Ehlers-Danlos syndrome [Not Recovered/Not Resolved]
  - Skin abrasion [Unknown]

NARRATIVE: CASE EVENT DATE: 20191103
